FAERS Safety Report 4667797-7 (Version None)
Quarter: 2005Q2

REPORT INFORMATION
  Report Type: 
  Country: None (occurrence: None)
  Receive Date: 20050520
  Receipt Date: 20050422
  Transmission Date: 20051028
  Serious: Yes (Other)
  Sender: FDA-Public Use
  Company Number: DE-GLAXOSMITHKLINE-D0046439A

PATIENT
  Age: 48 Year
  Sex: Female
  Weight: 75 kg

DRUGS (2)
  1. IMIGRAN [Suspect]
     Indication: MIGRAINE
     Dosage: 100MG UNKNOWN
     Route: 048
     Dates: start: 20031224
  2. ERGOTAM [Suspect]
     Indication: CARDIOVASCULAR DISORDER
     Dosage: 5MG IN THE MORNING
     Route: 048
     Dates: start: 20041216, end: 20050215

REACTIONS (3)
  - DRUG INTERACTION [None]
  - FORMICATION [None]
  - HYPOAESTHESIA [None]
